FAERS Safety Report 4835704-X (Version None)
Quarter: 2005Q4

REPORT INFORMATION
  Report Type: 
  Country: None (occurrence: None)
  Receive Date: 20051121
  Receipt Date: 20051114
  Transmission Date: 20060501
  Serious: Yes (Death)
  Sender: FDA-Public Use
  Company Number: 163-20785-05100186

PATIENT
  Age: 57 Year
  Sex: Male

DRUGS (1)
  1. THALOMID [Suspect]
     Indication: MULTIPLE MYELOMA
     Dosage: 100 MG, BID, ORAL
     Route: 048
     Dates: start: 20050627, end: 20050801

REACTIONS (4)
  - CHOLECYSTITIS [None]
  - HEPATIC CONGESTION [None]
  - HYPERCALCAEMIA [None]
  - RENAL FAILURE [None]
